FAERS Safety Report 14300871 (Version 1)
Quarter: 2017Q4

REPORT INFORMATION
  Report Type: Report from Study
  Country: GB (occurrence: GB)
  Receive Date: 20171219
  Receipt Date: 20171219
  Transmission Date: 20180321
  Serious: Yes (Hospitalization)
  Sender: FDA-Public Use
  Company Number: PHHY2017GB187557

PATIENT
  Sex: Female

DRUGS (1)
  1. COSENTYX [Suspect]
     Active Substance: SECUKINUMAB
     Indication: PSORIASIS
     Dosage: 300 MG, QMO (TWO PENS, AS DIRECTED)
     Route: 058
     Dates: start: 20170706

REACTIONS (6)
  - Asthenia [Unknown]
  - Hypersomnia [Unknown]
  - Dizziness [Unknown]
  - Pneumonia [Unknown]
  - Speech disorder [Unknown]
  - Balance disorder [Unknown]
